FAERS Safety Report 18493725 (Version 2)
Quarter: 2020Q4

REPORT INFORMATION
  Report Type: Report from Study
  Country: None (occurrence: US)
  Receive Date: 20201112
  Receipt Date: 20201118
  Transmission Date: 20210114
  Serious: Yes (Hospitalization)
  Sender: FDA-Public Use
  Company Number: US-ABBVIE-20K-163-3616222-00

PATIENT
  Sex: Male
  Weight: 81.72 kg

DRUGS (3)
  1. HUMIRA [Suspect]
     Active Substance: ADALIMUMAB
     Route: 058
     Dates: start: 20201109
  2. HUMIRA [Suspect]
     Active Substance: ADALIMUMAB
     Route: 058
  3. HUMIRA [Suspect]
     Active Substance: ADALIMUMAB
     Indication: CROHN^S DISEASE
     Route: 058
     Dates: start: 20190325, end: 20201102

REACTIONS (11)
  - Fungal infection [Recovered/Resolved]
  - Dyspnoea [Recovered/Resolved]
  - Gastrointestinal disorder [Unknown]
  - Intestinal obstruction [Recovered/Resolved]
  - Urinary tract infection [Recovered/Resolved]
  - Food poisoning [Recovered/Resolved]
  - Dizziness [Recovered/Resolved]
  - Nausea [Recovered/Resolved]
  - Muscular weakness [Recovered/Resolved]
  - Crohn^s disease [Recovered/Resolved]
  - Heart rate irregular [Not Recovered/Not Resolved]

NARRATIVE: CASE EVENT DATE: 2020
